FAERS Safety Report 16212502 (Version 2)
Quarter: 2019Q2

REPORT INFORMATION
  Report Type: Spontaneous
  Country: SK (occurrence: SK)
  Receive Date: 20190418
  Receipt Date: 20190506
  Transmission Date: 20190711
  Serious: Yes (Hospitalization, Other)
  Sender: FDA-Public Use
  Company Number: SK-TEVA-2019-SK-1039546

PATIENT
  Age: 69 Year
  Sex: Male

DRUGS (2)
  1. ACITRETIN. [Suspect]
     Active Substance: ACITRETIN
     Indication: PSORIASIS
     Dosage: 25 MILLIGRAM DAILY;
     Route: 048
     Dates: start: 201901, end: 2019
  2. PARENTHERAL ANTIBIOTICS WITH P-PNC [Concomitant]
     Indication: PSORIASIS
     Dosage: 1.5 MIL IU, ONCE DAILY
     Route: 030

REACTIONS (3)
  - Renal function test abnormal [Unknown]
  - Anaemia [Unknown]
  - Hypercholesterolaemia [Unknown]

NARRATIVE: CASE EVENT DATE: 2019
